FAERS Safety Report 16825564 (Version 1)
Quarter: 2019Q3

REPORT INFORMATION
  Report Type: Spontaneous
  Country: US (occurrence: US)
  Receive Date: 20190919
  Receipt Date: 20190919
  Transmission Date: 20191005
  Serious: No
  Sender: FDA-Public Use
  Company Number: US-BIOGEN-2019BI00783781

PATIENT
  Sex: Male

DRUGS (1)
  1. TECFIDERA [Suspect]
     Active Substance: DIMETHYL FUMARATE
     Indication: MULTIPLE SCLEROSIS
     Dosage: MAINTENANCE DOSE
     Route: 048
     Dates: start: 201808

REACTIONS (10)
  - CD4 lymphocytes decreased [Unknown]
  - Carbon dioxide decreased [Unknown]
  - Albumin globulin ratio increased [Unknown]
  - Blood alkaline phosphatase decreased [Unknown]
  - Alanine aminotransferase increased [Unknown]
  - T-lymphocyte count decreased [Unknown]
  - Mycobacterium tuberculosis complex test positive [Unknown]
  - White blood cell count decreased [Unknown]
  - CD8 lymphocytes increased [Unknown]
  - Neutrophil count decreased [Unknown]
